FAERS Safety Report 5348574-0 (Version None)
Quarter: 2007Q2

REPORT INFORMATION
  Report Type: 
  Country: None (occurrence: None)
  Receive Date: 20070605
  Receipt Date: 20070521
  Transmission Date: 20071010
  Serious: Yes (Disabling, Other)
  Sender: FDA-Public Use
  Company Number: 16623

PATIENT
  Age: 11 Year
  Sex: Male

DRUGS (6)
  1. CYTARABINE [Suspect]
     Indication: ACUTE PROMYELOCYTIC LEUKAEMIA
     Dosage: 380 MG
  2. CYTARABINE [Suspect]
     Indication: ACUTE PROMYELOCYTIC LEUKAEMIA
     Dosage: 70 MG IT
  3. ETOPOSIDE [Suspect]
     Indication: ACUTE PROMYELOCYTIC LEUKAEMIA
     Dosage: 180 MG
  4. DEXAMETHASONE 0.5MG TAB [Suspect]
     Indication: ACUTE PROMYELOCYTIC LEUKAEMIA
  5. THIOGUANINE [Suspect]
     Indication: ACUTE PROMYELOCYTIC LEUKAEMIA
     Dosage: 180 MG
  6. DANORUBICIN [Suspect]
     Indication: ACUTE PROMYELOCYTIC LEUKAEMIA
     Dosage: 38 MG

REACTIONS (5)
  - DRUG TOXICITY [None]
  - METASTASES TO LYMPH NODES [None]
  - RENAL CELL CARCINOMA STAGE UNSPECIFIED [None]
  - RENAL FAILURE CHRONIC [None]
  - SUDDEN DEATH [None]
